FAERS Safety Report 9345457 (Version 3)
Quarter: 2013Q3

REPORT INFORMATION
  Report Type: Spontaneous
  Country: US (occurrence: US)
  Receive Date: 20130613
  Receipt Date: 20130724
  Transmission Date: 20140515
  Serious: Yes (Other)
  Sender: FDA-Public Use
  Company Number: US-ABBOTT-13P-163-1092526-00

PATIENT
  Sex: Female
  Weight: 67.19 kg

DRUGS (3)
  1. SYNTHROID [Suspect]
     Indication: HYPOTHYROIDISM
     Route: 048
     Dates: start: 1966, end: 200710
  2. SYNTHROID [Suspect]
     Dosage: 1 - 150 MCG TABLET EVERY MON-WED-FRI
     Route: 048
     Dates: start: 201305
  3. SYNTHROID [Suspect]
     Indication: HYPOTHYROIDISM
     Dosage: 1 - 125 MCG TABLET EVERY TUE-THUR-SAT-SUN
     Route: 048
     Dates: start: 201305

REACTIONS (14)
  - Eye haemorrhage [Recovered/Resolved with Sequelae]
  - Ischaemic stroke [Unknown]
  - Cerebrovascular accident [Unknown]
  - Headache [Recovered/Resolved]
  - Arthritis [Recovered/Resolved]
  - Laboratory test abnormal [Unknown]
  - Macular degeneration [Not Recovered/Not Resolved]
  - Body height decreased [Recovered/Resolved]
  - Back pain [Not Recovered/Not Resolved]
  - Intervertebral disc degeneration [Not Recovered/Not Resolved]
  - Pancreatitis chronic [Not Recovered/Not Resolved]
  - Cholecystitis chronic [Not Recovered/Not Resolved]
  - Hypertension [Not Recovered/Not Resolved]
  - Blood cholesterol increased [Not Recovered/Not Resolved]
